FAERS Safety Report 12672118 (Version 14)
Quarter: 2020Q4

REPORT INFORMATION
  Report Type: Spontaneous
  Country: US (occurrence: US)
  Receive Date: 20160822
  Receipt Date: 20201123
  Transmission Date: 20210113
  Serious: Yes (Death, Other)
  Sender: FDA-Public Use
  Company Number: US-PFIZER INC-2016097502

PATIENT
  Age: 77 Year
  Sex: Female

DRUGS (1)
  1. XELJANZ [Suspect]
     Active Substance: TOFACITINIB CITRATE
     Indication: RHEUMATOID ARTHRITIS
     Dosage: 5 MG, 2X/DAY

REACTIONS (8)
  - Pain [Unknown]
  - Dyspnoea [Unknown]
  - Panic reaction [Unknown]
  - Death [Fatal]
  - Choking sensation [Unknown]
  - Extra dose administered [Unknown]
  - Illness [Unknown]
  - Viral infection [Unknown]
